FAERS Safety Report 4888222-7 (Version None)
Quarter: 2006Q1

REPORT INFORMATION
  Report Type: 
  Country: None (occurrence: None)
  Receive Date: 20060123
  Receipt Date: 20060105
  Transmission Date: 20060701
  Serious: Yes (Hospitalization, Other)
  Sender: FDA-Public Use
  Company Number: PHBS2006JP00653

PATIENT
  Age: 87 Year
  Sex: Female

DRUGS (8)
  1. NITRODERM [Concomitant]
     Route: 061
  2. ARTIST [Concomitant]
     Dates: end: 20051231
  3. THYRADIN [Concomitant]
  4. TORSEMIDE [Concomitant]
  5. DIART [Concomitant]
  6. ACARDI [Concomitant]
  7. DORNER [Concomitant]
  8. DIOVAN [Suspect]
     Indication: CARDIAC FAILURE
     Dosage: 80 MG/DAY
     Route: 048
     Dates: start: 20050222, end: 20051231

REACTIONS (7)
  - BLOOD GLUCOSE DECREASED [None]
  - COLD SWEAT [None]
  - DIZZINESS [None]
  - HEPATITIS ACUTE [None]
  - HYPOGLYCAEMIA [None]
  - SPEECH DISORDER [None]
  - YAWNING [None]
